FAERS Safety Report 7002253-2 (Version None)
Quarter: 2010Q3

REPORT INFORMATION
  Report Type: 
  Country: None (occurrence: None)
  Receive Date: 20100920
  Receipt Date: 20090817
  Transmission Date: 20110219
  Serious: No
  Sender: FDA-Public Use
  Company Number: US-ASTRAZENECA-2009SE08448

PATIENT
  Age: 73 Year
  Sex: Male

DRUGS (3)
  1. SEROQUEL [Suspect]
     Route: 048
  2. SEROQUEL [Suspect]
     Dosage: 600-800 MILLIGRAMS, DAILY.
     Route: 048
  3. PREVACID [Concomitant]

REACTIONS (4)
  - COGNITIVE DISORDER [None]
  - DROOLING [None]
  - FACIAL SPASM [None]
  - INTENTIONAL DRUG MISUSE [None]
